FAERS Safety Report 8823220 (Version 1)
Quarter: 2012Q4

REPORT INFORMATION
  Report Type: 
  Country: US (occurrence: US)
  Receive Date: 20121003
  Receipt Date: 20121003
  Transmission Date: 20130627
  Serious: Yes (Death)
  Sender: FDA-Public Use
  Company Number: US-BAYER-2012-101582

PATIENT
  Age: 42 Year
  Sex: Female

DRUGS (1)
  1. YASMIN [Suspect]
     Indication: CONTRACEPTION
     Dosage: 1 UNK, QD
     Route: 048
     Dates: start: 2003, end: 201205

REACTIONS (2)
  - Pulmonary embolism [Fatal]
  - Circulatory collapse [Fatal]
